FAERS Safety Report 7217544-X (Version None)
Quarter: 2011Q1

REPORT INFORMATION
  Report Type: 
  Country: None (occurrence: None)
  Receive Date: 20110110
  Receipt Date: 20101231
  Transmission Date: 20110831
  Serious: Yes (Death)
  Sender: FDA-Public Use
  Company Number: US-PFIZER INC-2011003547

PATIENT
  Age: 29 Year
  Sex: Male

DRUGS (7)
  1. CLONAZEPAM [Suspect]
     Route: 048
  2. ACETAMINOPHEN AND HYDROCODONE BITARTRATE [Suspect]
     Route: 048
  3. FENTANYL [Suspect]
     Route: 048
  4. TIZANIDINE [Suspect]
     Route: 048
  5. VENLAFAXINE HCL [Suspect]
     Dosage: UNK
     Route: 048
  6. PRIMIDONE [Suspect]
     Route: 048
  7. LEVETIRACETAM [Suspect]
     Route: 048

REACTIONS (3)
  - CARDIAC ARREST [None]
  - RESPIRATORY ARREST [None]
  - COMPLETED SUICIDE [None]
